FAERS Safety Report 5351683-3 (Version None)
Quarter: 2007Q2

REPORT INFORMATION
  Report Type: 
  Country: None (occurrence: None)
  Receive Date: 20070518
  Receipt Date: 20070124
  Transmission Date: 20071010
  Serious: No
  Sender: FDA-Public Use
  Company Number: TPA2007A00220

PATIENT
  Age: 38 Year
  Sex: Male
  Weight: 86.1834 kg

DRUGS (2)
  1. ROZEREM [Suspect]
     Indication: INSOMNIA
     Dosage: 8 MG, QHS, PER ORAL
     Route: 048
     Dates: start: 20070122
  2. CELEXA [Concomitant]

REACTIONS (1)
  - DRUG INEFFECTIVE [None]
